FAERS Safety Report 12115920 (Version 1)
Quarter: 2016Q1

REPORT INFORMATION
  Report Type: Spontaneous
  Country: US (occurrence: US)
  Receive Date: 20160225
  Receipt Date: 20160225
  Transmission Date: 20160526
  Serious: No
  Sender: FDA-Public Use
  Company Number: US-LANTHEUS-LMI-2015-00447

PATIENT
  Sex: Female

DRUGS (1)
  1. DEFINITY [Suspect]
     Active Substance: PERFLUTREN
     Dosage: A COUPLE OF SPLASHES DILUTED DEFINITY (DILUTION DETAILS UNKNOWN)
     Route: 047

REACTIONS (1)
  - Occupational exposure to product [Recovered/Resolved]
